FAERS Safety Report 9108562 (Version 2)
Quarter: 2013Q1

REPORT INFORMATION
  Report Type: Spontaneous
  Country: FR (occurrence: FR)
  Receive Date: 20130222
  Receipt Date: 20130327
  Transmission Date: 20140127
  Serious: Yes (Hospitalization, Other)
  Sender: FDA-Public Use
  Company Number: FR-ABBOTT-13P-056-1051717-00

PATIENT
  Age: 63 None
  Sex: Female
  Weight: 91.9 kg

DRUGS (2)
  1. HUMIRA [Suspect]
     Indication: RHEUMATOID ARTHRITIS
     Dates: start: 200806, end: 201302
  2. ANTI-HYPERTENSIVE TREATMENT NOS [Concomitant]
     Indication: HYPERTENSION

REACTIONS (2)
  - Hypertension [Recovered/Resolved]
  - Hypertension [Unknown]
